FAERS Safety Report 9306756 (Version 1)
Quarter: 2013Q2

REPORT INFORMATION
  Report Type: Spontaneous
  Country: US (occurrence: US)
  Receive Date: 20130523
  Receipt Date: 20130523
  Transmission Date: 20140414
  Serious: No
  Sender: FDA-Public Use
  Company Number: US-ASTRAZENECA-2012SE28001

PATIENT
  Age: 55 Year
  Sex: Female

DRUGS (4)
  1. PULMICORT FLEXHALER [Suspect]
     Route: 055
  2. NEXIUM [Suspect]
     Route: 048
  3. LOPRESSOR [Concomitant]
  4. MECLIZINE [Concomitant]

REACTIONS (3)
  - Gastrooesophageal reflux disease [Unknown]
  - Asthma [Unknown]
  - Dizziness [Unknown]
